FAERS Safety Report 7788460-X (Version None)
Quarter: 2011Q3

REPORT INFORMATION
  Report Type: 
  Country: None (occurrence: None)
  Receive Date: 20110927
  Receipt Date: 20110918
  Transmission Date: 20111222
  Serious: Yes (Other)
  Sender: FDA-Public Use
  Company Number: 2011SP044790

PATIENT
  Sex: Female

DRUGS (1)
  1. MIRALAX [Suspect]
     Indication: BOWEL PREPARATION
     Dosage: QH;PO
     Route: 048
     Dates: start: 20110918

REACTIONS (5)
  - EYE PRURITUS [None]
  - PRURITUS [None]
  - SPEECH DISORDER [None]
  - THROAT TIGHTNESS [None]
  - LIP SWELLING [None]
